FAERS Safety Report 6911770-2 (Version None)
Quarter: 2010Q3

REPORT INFORMATION
  Report Type: 
  Country: None (occurrence: None)
  Receive Date: 20100806
  Receipt Date: 20070807
  Transmission Date: 20110219
  Serious: No
  Sender: FDA-Public Use
  Company Number: US-PFIZER INC-2006071076

PATIENT
  Sex: Male
  Weight: 88.45 kg

DRUGS (8)
  1. DETROL LA [Suspect]
     Indication: MICTURITION URGENCY
     Dates: start: 20060518
  2. DETROL LA [Suspect]
     Indication: POLLAKIURIA
  3. REGLAN [Concomitant]
  4. DDAVP [Concomitant]
  5. OXYCODONE [Concomitant]
  6. MORPHINE [Concomitant]
  7. PROVIGIL [Concomitant]
  8. KETOPROFEN [Concomitant]

REACTIONS (1)
  - DRY MOUTH [None]
